FAERS Safety Report 4491837-1 (Version None)
Quarter: 2004Q4

REPORT INFORMATION
  Report Type: 
  Country: None (occurrence: None)
  Receive Date: 20041028
  Receipt Date: 20041028
  Transmission Date: 20050328
  Serious: Yes (Life-Threatening)
  Sender: FDA-Public Use
  Company Number: None

PATIENT
  Age: 4 Year
  Sex: Male
  Weight: 17.5 kg

DRUGS (5)
  1. CARBOPLATIN [Suspect]
     Indication: ASTROCYTOMA
     Dosage: 125 MG EVERY 7 DAYS INTRAVENOU
     Route: 042
     Dates: start: 20031201, end: 20041018
  2. DIASTAT [Concomitant]
  3. KEPPRA [Concomitant]
  4. WARFARIN SODIUM [Concomitant]
  5. SEPTRA [Concomitant]

REACTIONS (7)
  - ASTHENIA [None]
  - BLOOD PRESSURE DECREASED [None]
  - ERYTHEMA [None]
  - PHARYNGITIS [None]
  - PHARYNGOLARYNGEAL PAIN [None]
  - THROAT TIGHTNESS [None]
  - URTICARIA [None]
